FAERS Safety Report 21368962 (Version 2)
Quarter: 2022Q3

REPORT INFORMATION
  Report Type: Spontaneous
  Country: US (occurrence: US)
  Receive Date: 20220923
  Receipt Date: 20220928
  Transmission Date: 20221027
  Serious: Yes (Hospitalization, Other)
  Sender: FDA-Public Use
  Company Number: US-BRISTOL-MYERS SQUIBB COMPANY-2022-110310

PATIENT
  Age: 68 Year
  Sex: Female

DRUGS (1)
  1. THALOMID [Suspect]
     Active Substance: THALIDOMIDE
     Indication: Product used for unknown indication
     Dosage: TAKE ONE CAPSULE
     Route: 048
     Dates: start: 20220923

REACTIONS (3)
  - Intestinal haemorrhage [Unknown]
  - Gait inability [Not Recovered/Not Resolved]
  - Off label use [Unknown]
